FAERS Safety Report 23680026 (Version 1)
Quarter: 2024Q1

REPORT INFORMATION
  Report Type: Spontaneous
  Country: US (occurrence: US)
  Receive Date: 20240327
  Receipt Date: 20240327
  Transmission Date: 20240410
  Serious: Yes (Other)
  Sender: FDA-Public Use
  Company Number: US-LUNDBECK-DKLU3075939

PATIENT
  Age: 10 Year
  Sex: Female
  Weight: 25.13 kg

DRUGS (1)
  1. SABRIL [Suspect]
     Active Substance: VIGABATRIN
     Indication: Lennox-Gastaut syndrome
     Route: 048

REACTIONS (2)
  - Seizure [Not Recovered/Not Resolved]
  - Prescribed overdose [Unknown]
